FAERS Safety Report 6207524-5 (Version None)
Quarter: 2009Q2

REPORT INFORMATION
  Report Type: 
  Country: None (occurrence: None)
  Receive Date: 20090526
  Receipt Date: 20090513
  Transmission Date: 20091009
  Serious: Yes (Hospitalization)
  Sender: FDA-Public Use
  Company Number: MSTR-NO-0802S-0004

PATIENT
  Age: 73 Year
  Sex: Male
  Weight: 65 kg

DRUGS (1)
  1. METASTRON [Suspect]
     Indication: METASTATIC PAIN
     Dosage: I.V.
     Route: 042
     Dates: start: 20071122, end: 20071122

REACTIONS (19)
  - ANORECTAL DISORDER [None]
  - ANOREXIA [None]
  - BLADDER DISORDER [None]
  - BLOOD PRESSURE DECREASED [None]
  - BONE PAIN [None]
  - CONDITION AGGRAVATED [None]
  - CONSTIPATION [None]
  - DECUBITUS ULCER [None]
  - DEPRESSED LEVEL OF CONSCIOUSNESS [None]
  - DIARRHOEA [None]
  - GASTRIC MUCOSAL LESION [None]
  - INFECTION [None]
  - INFLAMMATION [None]
  - INSOMNIA [None]
  - NAUSEA [None]
  - PYREXIA [None]
  - SOMNOLENCE [None]
  - URINE OUTPUT DECREASED [None]
  - VOMITING [None]
